FAERS Safety Report 18622694 (Version 1)
Quarter: 2020Q4

REPORT INFORMATION
  Report Type: Spontaneous
  Country: ES (occurrence: ES)
  Receive Date: 20201216
  Receipt Date: 20201216
  Transmission Date: 20210114
  Serious: Yes (Hospitalization, Other)
  Sender: FDA-Public Use
  Company Number: ES-NOVOPROD-772574

PATIENT
  Age: 51 Year
  Sex: Female
  Weight: 80 kg

DRUGS (10)
  1. VICTOZA [Concomitant]
     Active Substance: LIRAGLUTIDE
     Dosage: 1.2 MG, QD
     Route: 065
     Dates: start: 20181019, end: 20190705
  2. SITAGLIPTINA [SITAGLIPTIN] [Suspect]
     Active Substance: SITAGLIPTIN
     Indication: PRODUCT USED FOR UNKNOWN INDICATION
     Dosage: 50 MG, BID (12 HR)
     Route: 065
     Dates: start: 20170829, end: 20171127
  3. EUTIROX [Concomitant]
     Active Substance: LEVOTHYROXINE SODIUM
     Indication: THYROIDECTOMY
     Dosage: 150 ?G, QD
     Route: 065
     Dates: start: 20190109
  4. EUTIROX [Concomitant]
     Active Substance: LEVOTHYROXINE SODIUM
     Indication: GOITRE
  5. EMPAGLIFLOZIN [Concomitant]
     Active Substance: EMPAGLIFLOZIN
     Indication: TYPE 2 DIABETES MELLITUS
     Dosage: 5 MG, BID
     Route: 065
     Dates: start: 20181019
  6. METFORMIN [Concomitant]
     Active Substance: METFORMIN HYDROCHLORIDE
     Indication: TYPE 2 DIABETES MELLITUS
     Dosage: 1000 MG, BID
     Route: 065
     Dates: start: 20151112
  7. LINAGLIPTINA [Suspect]
     Active Substance: LINAGLIPTIN
     Indication: TYPE 2 DIABETES MELLITUS
     Dosage: 2.5 MG, BID (Q 12HR)
     Dates: start: 20171127, end: 20181019
  8. OZEMPIC [Suspect]
     Active Substance: SEMAGLUTIDE
     Indication: PRODUCT USED FOR UNKNOWN INDICATION
     Dosage: 1 MG, QW
     Route: 065
     Dates: start: 20190924
  9. OZEMPIC [Suspect]
     Active Substance: SEMAGLUTIDE
     Indication: TYPE 2 DIABETES MELLITUS
     Dosage: 0.5 MG
     Route: 065
     Dates: start: 20190705
  10. LANTUS SOLOSTAR 100 UNIDADES/ML 5 PLUMAS PRECARG 3ML SOLUC INYEC [Concomitant]
     Indication: TYPE 2 DIABETES MELLITUS
     Dosage: (30-80) UI EN EL DESAYUNO
     Dates: start: 20171215

REACTIONS (1)
  - Pancreatic neuroendocrine tumour [Recovered/Resolved]

NARRATIVE: CASE EVENT DATE: 20190705
